FAERS Safety Report 10048474 (Version 1)
Quarter: 2014Q1

REPORT INFORMATION
  Report Type: Spontaneous
  Country: US (occurrence: None)
  Receive Date: 20140306
  Receipt Date: 20140306
  Transmission Date: 20141002
  Serious: Yes (Other)
  Sender: FDA-Public Use
  Company Number: 163-21880-13020297

PATIENT
  Age: 56 Year
  Sex: Male
  Weight: 96.16 kg

DRUGS (9)
  1. REVLIMID [Suspect]
     Indication: PLASMA CELL MYELOMA
     Dosage: X28DAYS
     Route: 048
     Dates: start: 20120524
  2. CALCITRIOL [Concomitant]
  3. COLCHICINE [Concomitant]
  4. HUMALOG (INSULIN LISPRO) [Concomitant]
  5. HYDRALAZINE [Concomitant]
  6. LANTUS (INSULIN GLARGINE) [Concomitant]
  7. PREDNISONE [Concomitant]
  8. TORSEMIDE [Concomitant]
  9. ULORIC (FEBUXOSTAT) [Concomitant]

REACTIONS (3)
  - Rheumatoid arthritis [None]
  - Nausea [None]
  - Rash [None]
